FAERS Safety Report 15080318 (Version 1)
Quarter: 2018Q3

REPORT INFORMATION
  Report Type: Other
  Country: FR (occurrence: FR)
  Receive Date: 20180628
  Receipt Date: 20180628
  Transmission Date: 20181010
  Serious: Yes (Other)
  Sender: FDA-Public Use
  Company Number: FR-DENTSPLY-2018SCDP000255

PATIENT

DRUGS (1)
  1. PRILOCAINE AND LIDOCAINE (LIDOCAINE, PRILOCAINE) UNKNOWN [Suspect]
     Active Substance: LIDOCAINE\PRILOCAINE
     Indication: PROPHYLAXIS
     Dosage: 2 DF, PATCH
     Route: 062
     Dates: start: 20180604, end: 20180604

REACTIONS (2)
  - Burns second degree [None]
  - Burns second degree [None]

NARRATIVE: CASE EVENT DATE: 20180604
